FAERS Safety Report 21052294 (Version 5)
Quarter: 2022Q4

REPORT INFORMATION
  Report Type: Spontaneous
  Country: RO (occurrence: RO)
  Receive Date: 20220707
  Receipt Date: 20221013
  Transmission Date: 20230113
  Serious: Yes (Other)
  Sender: FDA-Public Use
  Company Number: RO-NOVARTISPH-NVSC2022RO152205

PATIENT
  Age: 42 Year
  Sex: Female
  Weight: 90 kg

DRUGS (9)
  1. OMEPRAZOLE [Suspect]
     Active Substance: OMEPRAZOLE
     Indication: Pemphigus
     Dosage: 40 MILLIGRAM, UNK
     Route: 065
  2. AMOXICILLIN\CLAVULANIC ACID [Suspect]
     Active Substance: AMOXICILLIN\CLAVULANIC ACID
     Indication: Antibiotic prophylaxis
     Dosage: 1 DOSAGE FORM, Q12H
     Route: 048
  3. DEOXYCHOLIC ACID [Suspect]
     Active Substance: DEOXYCHOLIC ACID
     Indication: Cholestasis of pregnancy
     Dosage: 2 DOSAGE FORM, QD (2 TB/DAY)
     Route: 048
  4. PREDNISONE [Suspect]
     Active Substance: PREDNISONE
     Indication: Pemphigus
     Dosage: 5 MILLIGRAM, 6 TB/DAY
     Route: 065
  5. CETIRIZINE HYDROCHLORIDE [Suspect]
     Active Substance: CETIRIZINE HYDROCHLORIDE
     Indication: Pemphigus
     Dosage: 10 MG
     Route: 048
  6. URSODIOL [Suspect]
     Active Substance: URSODIOL
     Indication: Cholestasis of pregnancy
     Dosage: UNK
     Route: 065
  7. DEXAMETHASONE [Suspect]
     Active Substance: DEXAMETHASONE
     Indication: Pemphigus
     Dosage: 8 MILLIGRAM, BID, I.M. I.V.
     Route: 065
  8. BENZALKONIUM CHLORIDE\CHLORHEXIDINE [Suspect]
     Active Substance: BENZALKONIUM CHLORIDE\CHLORHEXIDINE
     Indication: Pemphigus
     Dosage: UNK UNK, BID (LOCAL SKIN APPLICATION OF SOLUTION)
     Route: 061
  9. BENZALKONIUM CHLORIDE\CHLORHEXIDINE [Suspect]
     Active Substance: BENZALKONIUM CHLORIDE\CHLORHEXIDINE
     Dosage: 0.5 UNK, BID
     Route: 003

REACTIONS (3)
  - Premature delivery [Unknown]
  - Maternal exposure during pregnancy [Unknown]
  - Product use in unapproved indication [Unknown]
